FAERS Safety Report 5647219-X (Version None)
Quarter: 2008Q1

REPORT INFORMATION
  Report Type: 
  Country: None (occurrence: None)
  Receive Date: 20080303
  Receipt Date: 20080114
  Transmission Date: 20080703
  Serious: Yes (Life-Threatening, Hospitalization)
  Sender: FDA-Public Use
  Company Number: GB-ROCHE-538991

PATIENT
  Age: 60 Year
  Sex: Male

DRUGS (5)
  1. CAPECITABINE [Suspect]
     Indication: COLON CANCER
     Route: 048
     Dates: start: 20071213
  2. CAPECITABINE [Suspect]
     Route: 048
     Dates: start: 20080104
  3. BEVACIZUMAB [Suspect]
     Indication: COLON CANCER
     Route: 042
     Dates: start: 20071213
  4. BEVACIZUMAB [Suspect]
     Route: 042
     Dates: start: 20080104
  5. OMEPRAZOLE [Concomitant]
     Route: 048
     Dates: start: 20071213

REACTIONS (2)
  - LOWER RESPIRATORY TRACT INFECTION [None]
  - PULMONARY EMBOLISM [None]
